FAERS Safety Report 7438986-3 (Version None)
Quarter: 2011Q2

REPORT INFORMATION
  Report Type: 
  Country: None (occurrence: None)
  Receive Date: 20110427
  Receipt Date: 20110201
  Transmission Date: 20111010
  Serious: Yes (Other)
  Sender: FDA-Public Use
  Company Number: GB-ACTELION-A-CH2010-36072

PATIENT
  Age: 23 Year
  Sex: Female
  Weight: 56 kg

DRUGS (4)
  1. TRACLEER [Suspect]
     Dosage: UNK
     Route: 048
  2. WARFARIN [Concomitant]
  3. TRACLEER [Suspect]
     Indication: PULMONARY ARTERIAL HYPERTENSION
     Dosage: UNK
     Route: 048
  4. VENTAVIS [Suspect]
     Indication: PULMONARY ARTERIAL HYPERTENSION
     Route: 055

REACTIONS (8)
  - GENERAL PHYSICAL HEALTH DETERIORATION [None]
  - NORMAL NEWBORN [None]
  - PREGNANCY [None]
  - PREMATURE BABY [None]
  - CAESAREAN SECTION [None]
  - CARDIO-RESPIRATORY ARREST [None]
  - CATHETERISATION CARDIAC [None]
  - RESUSCITATION [None]
